FAERS Safety Report 6905049-2 (Version None)
Quarter: 2010Q3

REPORT INFORMATION
  Report Type: 
  Country: None (occurrence: None)
  Receive Date: 20100804
  Receipt Date: 20090909
  Transmission Date: 20110219
  Serious: No
  Sender: FDA-Public Use
  Company Number: US-PFIZER INC-2009248067

PATIENT
  Sex: Female
  Weight: 76.2 kg

DRUGS (5)
  1. LYRICA [Suspect]
     Indication: HERPES ZOSTER
     Dosage: 50 MG, 3X/DAY
     Dates: start: 20081201
  2. LEVOTHYROXINE SODIUM [Concomitant]
     Dosage: UNK
  3. IBANDRONATE SODIUM [Concomitant]
     Dosage: UNK
  4. LANSOPRAZOLE [Concomitant]
     Dosage: UNK
  5. OXYBUTYNIN CHLORIDE [Concomitant]
     Dosage: UNK

REACTIONS (2)
  - JOINT STIFFNESS [None]
  - JOINT SWELLING [None]
